FAERS Safety Report 8506135-6 (Version None)
Quarter: 2012Q3

REPORT INFORMATION
  Report Type: 
  Country: None (occurrence: None)
  Receive Date: 20120712
  Receipt Date: 20120702
  Transmission Date: 20120928
  Serious: Yes (Hospitalization, Other)
  Sender: FDA-Public Use
  Company Number: US-ABBOTT-12P-163-0952196-00

PATIENT

DRUGS (1)
  1. HUMIRA [Suspect]
     Indication: MATERNAL EXPOSURE TIMING UNSPECIFIED
     Route: 064

REACTIONS (6)
  - JAUNDICE [None]
  - FOETAL EXPOSURE DURING PREGNANCY [None]
  - WEIGHT DECREASE NEONATAL [None]
  - FEEDING DISORDER NEONATAL [None]
  - HYPOTHERMIA NEONATAL [None]
  - ABO INCOMPATIBILITY [None]
